FAERS Safety Report 24246705 (Version 1)
Quarter: 2024Q3

REPORT INFORMATION
  Report Type: Spontaneous
  Country: JP (occurrence: JP)
  Receive Date: 20240825
  Receipt Date: 20240825
  Transmission Date: 20241017
  Serious: Yes (Life-Threatening, Hospitalization)
  Sender: AMGEN
  Company Number: JP-DSJP-DSJ-2024-140936

PATIENT
  Age: 83 Year
  Sex: Male

DRUGS (2)
  1. BEVACIZUMAB [Suspect]
     Active Substance: BEVACIZUMAB
     Indication: Metastases to lung
     Dosage: 600 MILLIGRAM
     Route: 065
  2. ATEZOLIZUMAB [Suspect]
     Active Substance: ATEZOLIZUMAB
     Indication: Metastases to lung
     Dosage: 1200 MILLIGRAM
     Route: 065

REACTIONS (4)
  - Myositis [Recovering/Resolving]
  - Myasthenia gravis [Recovering/Resolving]
  - Autonomic neuropathy [Recovering/Resolving]
  - Myocarditis [Recovering/Resolving]
